FAERS Safety Report 5186259-4 (Version None)
Quarter: 2006Q4

REPORT INFORMATION
  Report Type: 
  Country: None (occurrence: None)
  Receive Date: 20061212
  Receipt Date: 20061129
  Transmission Date: 20070319
  Serious: Yes (Death)
  Sender: FDA-Public Use
  Company Number: HQWYE393711NOV04

PATIENT
  Age: 46 Year
  Sex: Male

DRUGS (4)
  1. EFFEXOR XR [Suspect]
     Indication: DEPRESSION
     Dosage: 37.5 MG 2X PER 1 DAY
     Dates: start: 20020928
  2. NEXIUM [Concomitant]
  3. CEFZIL [Concomitant]
  4. CELEBREX [Concomitant]

REACTIONS (6)
  - ANTIDEPRESSANT DRUG LEVEL BELOW THERAPEUTIC [None]
  - ANXIETY [None]
  - COMPLETED SUICIDE [None]
  - FEELING OF DESPAIR [None]
  - GUN SHOT WOUND [None]
  - SUICIDAL IDEATION [None]
